FAERS Safety Report 16667864 (Version 4)
Quarter: 2020Q2

REPORT INFORMATION
  Report Type: Report from Study
  Country: US (occurrence: US)
  Receive Date: 20190805
  Receipt Date: 20200608
  Transmission Date: 20200713
  Serious: Yes (Other)
  Sender: FDA-Public Use
  Company Number: US-SA-2019SA212021

PATIENT

DRUGS (2)
  1. DUPILUMAB [Suspect]
     Active Substance: DUPILUMAB
     Indication: DERMATITIS ATOPIC
     Dosage: 600 MG, 1X
     Route: 058
     Dates: start: 2019, end: 2019
  2. DUPILUMAB [Suspect]
     Active Substance: DUPILUMAB
     Dosage: 300 MG, QOW
     Route: 058

REACTIONS (16)
  - Erythema [Recovering/Resolving]
  - Dermatitis atopic [Recovering/Resolving]
  - Oral herpes [Unknown]
  - Hypersensitivity [Recovering/Resolving]
  - Arthropod sting [Unknown]
  - Product dose omission [Unknown]
  - Drug ineffective [Unknown]
  - Swelling of eyelid [Unknown]
  - Rash [Recovered/Resolved]
  - Nephrolithiasis [Unknown]
  - Milia [Unknown]
  - Eyelid pain [Unknown]
  - Dermatitis atopic [Unknown]
  - Rash [Recovering/Resolving]
  - Skin swelling [Recovering/Resolving]
  - Therapeutic response unexpected [Unknown]

NARRATIVE: CASE EVENT DATE: 2019
